FAERS Safety Report 21510861 (Version 1)
Quarter: 2022Q4

REPORT INFORMATION
  Report Type: Spontaneous
  Country: US (occurrence: US)
  Receive Date: 20221026
  Receipt Date: 20221026
  Transmission Date: 20230113
  Serious: Yes (Other)
  Sender: FDA-Public Use
  Company Number: US-009507513-2210USA007572

PATIENT
  Sex: Female

DRUGS (6)
  1. KEYTRUDA [Suspect]
     Active Substance: PEMBROLIZUMAB
     Indication: Triple negative breast cancer
     Dosage: UNK UNK, Q3W
     Route: 042
     Dates: start: 20220427, end: 20220824
  2. CARBOPLATIN [Suspect]
     Active Substance: CARBOPLATIN
     Dosage: UNK, QW
     Dates: start: 2022, end: 2022
  3. TAXOL [Suspect]
     Active Substance: PACLITAXEL
     Dosage: UNK, QW
     Dates: start: 2022, end: 2022
  4. ADRIAMYCIN [Suspect]
     Active Substance: DOXORUBICIN HYDROCHLORIDE
     Dosage: UNK
     Dates: start: 20220803, end: 20220824
  5. CYTOXAN [Suspect]
     Active Substance: CYCLOPHOSPHAMIDE
     Dosage: UNK
     Dates: start: 20220803, end: 20220824
  6. LORAZEPAM [Concomitant]
     Active Substance: LORAZEPAM

REACTIONS (15)
  - Adrenal insufficiency [Not Recovered/Not Resolved]
  - Neuropathy peripheral [Not Recovered/Not Resolved]
  - Hypothyroidism [Unknown]
  - Pain [Unknown]
  - Hot flush [Not Recovered/Not Resolved]
  - Hyperhidrosis [Unknown]
  - Bone pain [Not Recovered/Not Resolved]
  - Illness [Not Recovered/Not Resolved]
  - Adverse event [Not Recovered/Not Resolved]
  - Feeling abnormal [Unknown]
  - Dehydration [Unknown]
  - Pyrexia [Unknown]
  - Blood growth hormone increased [Unknown]
  - Hypophysitis [Unknown]
  - Adenoma benign [Unknown]

NARRATIVE: CASE EVENT DATE: 20220101
